FAERS Safety Report 7306790-2 (Version None)
Quarter: 2011Q1

REPORT INFORMATION
  Report Type: 
  Country: None (occurrence: None)
  Receive Date: 20110222
  Receipt Date: 20091023
  Transmission Date: 20110831
  Serious: Yes (Other)
  Sender: FDA-Public Use
  Company Number: US-BAYER-200928638NA

PATIENT
  Sex: Male
  Weight: 143.76 kg

DRUGS (5)
  1. PROHANCE [Suspect]
     Indication: PRODUCT USED FOR UNKNOWN INDICATION
  2. MAGNEVIST [Suspect]
     Indication: PRODUCT USED FOR UNKNOWN INDICATION
  3. OMNISCAN [Suspect]
     Indication: PRODUCT USED FOR UNKNOWN INDICATION
  4. MULTIHANCE [Suspect]
     Indication: PRODUCT USED FOR UNKNOWN INDICATION
  5. OPTIMARK [Suspect]
     Indication: PRODUCT USED FOR UNKNOWN INDICATION

REACTIONS (14)
  - SKIN TIGHTNESS [None]
  - SKIN HYPOPIGMENTATION [None]
  - RASH MACULAR [None]
  - MOBILITY DECREASED [None]
  - SKIN DISCOLOURATION [None]
  - GENERAL PHYSICAL HEALTH DETERIORATION [None]
  - FIBROSIS [None]
  - OEDEMA PERIPHERAL [None]
  - PAIN [None]
  - NEPHROGENIC SYSTEMIC FIBROSIS [None]
  - SKIN EXFOLIATION [None]
  - SKIN HYPERTROPHY [None]
  - SKIN FIBROSIS [None]
  - DRY SKIN [None]
